FAERS Safety Report 8092825-9 (Version None)
Quarter: 2012Q1

REPORT INFORMATION
  Report Type: 
  Country: None (occurrence: None)
  Receive Date: 20120128
  Receipt Date: 20110725
  Transmission Date: 20120608
  Serious: No
  Sender: FDA-Public Use
  Company Number: US-ABBOTT-11P-163-0841661-00

PATIENT
  Age: 50 Year
  Sex: Female

DRUGS (3)
  1. BENAZEPRIL HYDROCHLORIDE [Concomitant]
     Indication: BLOOD PRESSURE
  2. CELEXA [Concomitant]
     Indication: DEPRESSION
     Route: 048
  3. HUMIRA [Suspect]
     Indication: PSORIASIS
     Dates: start: 20110601

REACTIONS (1)
  - FATIGUE [None]
